FAERS Safety Report 8876352 (Version 1)
Quarter: 2012Q4

REPORT INFORMATION
  Report Type: 
  Country: US (occurrence: US)
  Receive Date: 20121030
  Receipt Date: 20121030
  Transmission Date: 20130627
  Serious: Yes (Other)
  Sender: FDA-Public Use
  Company Number: PHHY2012US064736

PATIENT
  Age: 73 Year
  Sex: Female

DRUGS (2)
  1. ACETYLSALICYLIC ACID [Suspect]
     Indication: HEADACHE
  2. METHOTREXATE [Concomitant]
     Indication: CHEMOTHERAPY

REACTIONS (3)
  - Gastric volvulus [Unknown]
  - Drug hypersensitivity [Unknown]
  - Drug ineffective [Unknown]
